FAERS Safety Report 5919712-3 (Version None)
Quarter: 2008Q4

REPORT INFORMATION
  Report Type: 
  Country: None (occurrence: None)
  Receive Date: 20081015
  Receipt Date: 20080930
  Transmission Date: 20090506
  Serious: Yes (Hospitalization)
  Sender: FDA-Public Use
  Company Number: JP-GENENTECH-266723

PATIENT
  Sex: Male

DRUGS (4)
  1. AVASTIN [Suspect]
     Indication: COLON CANCER RECURRENT
     Dosage: 5 MG/KG, Q2W
     Route: 041
     Dates: start: 20080212, end: 20080707
  2. OXALIPLATIN [Suspect]
     Indication: COLON CANCER RECURRENT
     Dosage: 130 MG, Q2W
     Route: 041
     Dates: start: 20080225, end: 20080707
  3. ISOVORIN [Suspect]
     Indication: COLON CANCER RECURRENT
     Dosage: 150 MG, UNK
     Route: 041
     Dates: start: 20080225, end: 20080708
  4. FLUOROURACIL [Suspect]
     Indication: COLON CANCER RECURRENT
     Dosage: 600 MG, UNK
     Dates: start: 20080225, end: 20080708

REACTIONS (1)
  - INTERSTITIAL LUNG DISEASE [None]
